FAERS Safety Report 20752191 (Version 5)
Quarter: 2022Q2

REPORT INFORMATION
  Report Type: Report from Study
  Country: US (occurrence: US)
  Receive Date: 20220426
  Receipt Date: 20220602
  Transmission Date: 20220721
  Serious: No
  Sender: FDA-Public Use
  Company Number: US-NOVARTISTESTPH-NVSC2022US095125

PATIENT
  Age: 71 Year
  Sex: Female

DRUGS (3)
  1. ENTRESTO [Suspect]
     Active Substance: SACUBITRIL\VALSARTAN
     Indication: Cardiac failure
     Dosage: 1 DOSAGE FORM, BID (24/26 MG)
     Route: 048
     Dates: start: 20220401
  2. ENTRESTO [Suspect]
     Active Substance: SACUBITRIL\VALSARTAN
     Dosage: UNK UNK, BID (49/51 MG)
     Route: 048
     Dates: start: 20220401
  3. JARDIANCE [Concomitant]
     Active Substance: EMPAGLIFLOZIN
     Indication: Cardiac failure
     Dosage: UNK
     Route: 065
     Dates: start: 20220519

REACTIONS (8)
  - Tendon pain [Recovering/Resolving]
  - Swelling [Recovering/Resolving]
  - Tendon rupture [Unknown]
  - Trigger finger [Unknown]
  - Weight decreased [Unknown]
  - Carpal tunnel syndrome [Unknown]
  - Blood urea nitrogen/creatinine ratio increased [Unknown]
  - Product dose omission issue [Unknown]

NARRATIVE: CASE EVENT DATE: 20220420
